FAERS Safety Report 11847712 (Version 1)
Quarter: 2015Q4

REPORT INFORMATION
  Report Type: Spontaneous
  Country: JP (occurrence: JP)
  Receive Date: 20151217
  Receipt Date: 20151217
  Transmission Date: 20160305
  Serious: Yes (Death)
  Sender: FDA-Public Use
  Company Number: PHJP1900JP001227

PATIENT
  Age: 76 Year
  Sex: Female
  Weight: 45 kg

DRUGS (3)
  1. BRICEF [Concomitant]
     Indication: PRODUCT USED FOR UNKNOWN INDICATION
     Dosage: 1000 MG, UNK
     Route: 048
     Dates: start: 19820830, end: 19820830
  2. VOLTAREN [Suspect]
     Active Substance: DICLOFENAC SODIUM
     Indication: PRODUCT USED FOR UNKNOWN INDICATION
     Dosage: 100 MG, UNK
     Route: 065
     Dates: start: 19820830, end: 19820830
  3. LL [Concomitant]
     Indication: PRODUCT USED FOR UNKNOWN INDICATION
     Dosage: 1 ML, UNK
     Dates: start: 19820830, end: 19820830

REACTIONS (11)
  - Nasopharyngitis [Unknown]
  - Respiratory failure [Unknown]
  - Rash [Fatal]
  - Oedema [Fatal]
  - Oliguria [Fatal]
  - Stevens-Johnson syndrome [Fatal]
  - Skin erosion [Fatal]
  - Pyrexia [Unknown]
  - Erythema [Fatal]
  - Vomiting [Unknown]
  - Depressed level of consciousness [Unknown]
